FAERS Safety Report 7310946-2 (Version None)
Quarter: 2011Q1

REPORT INFORMATION
  Report Type: 
  Country: None (occurrence: None)
  Receive Date: 20110224
  Receipt Date: 20110211
  Transmission Date: 20110831
  Serious: Yes (Other)
  Sender: FDA-Public Use
  Company Number: PHFR2010IE03467

PATIENT
  Sex: Male

DRUGS (7)
  1. GLICLAZIDE [Concomitant]
     Dosage: 120 MG, QD
  2. ASPIRIN [Concomitant]
     Dosage: 75 MG, QD
  3. CLOZARIL [Suspect]
     Indication: SCHIZOPHRENIA
     Dosage: 100 MG MANE + 200 MG NOCTE
     Route: 048
     Dates: start: 20100810
  4. CLOPIDOGREL [Concomitant]
     Dosage: 75 MG, QD
  5. JANUMET [Concomitant]
     Dosage: 1 DF, BID
  6. BISOPROLOL FUMARATE [Concomitant]
     Dosage: 2.5 MG, QD
  7. ATORVASTATIN [Concomitant]
     Dosage: 40 MG, QD

REACTIONS (1)
  - WHITE BLOOD CELL COUNT DECREASED [None]
